FAERS Safety Report 12495161 (Version 9)
Quarter: 2020Q2

REPORT INFORMATION
  Report Type: Report from Study
  Country: DE (occurrence: DE)
  Receive Date: 20160624
  Receipt Date: 20200508
  Transmission Date: 20200713
  Serious: Yes (Life-Threatening, Hospitalization, Other)
  Sender: FDA-Public Use
  Company Number: PHHY2016DE085527

PATIENT
  Age: 40 Year
  Sex: Female
  Weight: 58 kg

DRUGS (9)
  1. CLEXANE [Concomitant]
     Active Substance: ENOXAPARIN SODIUM
     Indication: PRODUCT USED FOR UNKNOWN INDICATION
     Dosage: 0.4 MG, QD
     Route: 058
  2. MOVICOL [Concomitant]
     Active Substance: POLYETHYLENE GLYCOL 3350\POTASSIUM CHLORIDE\SODIUM BICARBONATE\SODIUM CHLORIDE
     Indication: PRODUCT USED FOR UNKNOWN INDICATION
     Dosage: 1 SACHET ON DEMAND
     Route: 065
  3. MULTIBIONTA [Concomitant]
     Active Substance: MINERALS\PROBIOTICS NOS\VITAMINS
     Indication: PRODUCT USED FOR UNKNOWN INDICATION
     Dosage: 20 DRP, IN THE MORNING
     Route: 065
  4. GILENYA [Suspect]
     Active Substance: FINGOLIMOD HYDROCHLORIDE
     Dosage: 0.5 MG, QOD
     Route: 048
     Dates: end: 20170620
  5. ORFIRIL [Concomitant]
     Active Substance: VALPROATE SODIUM
     Indication: PRODUCT USED FOR UNKNOWN INDICATION
     Dosage: 3 DF, UNK
     Route: 065
  6. FAMPYRA [Concomitant]
     Active Substance: DALFAMPRIDINE
     Indication: GAIT DISTURBANCE
     Dosage: 10 MG, BID (1-0-1-0)
     Route: 065
  7. PANTOZOL [Concomitant]
     Active Substance: PANTOPRAZOLE SODIUM
     Indication: PRODUCT USED FOR UNKNOWN INDICATION
     Dosage: 1 DF, QD (1-0-0)
     Route: 065
  8. BACLOFEN. [Concomitant]
     Active Substance: BACLOFEN
     Indication: MUSCLE SPASTICITY
     Dosage: 25 MG, (10 MG, (1-1/2-1-0))
     Route: 065
  9. GILENYA [Suspect]
     Active Substance: FINGOLIMOD HYDROCHLORIDE
     Indication: RELAPSING-REMITTING MULTIPLE SCLEROSIS
     Dosage: 0.5 MG, QD (1-0-0)
     Route: 048
     Dates: start: 20150122

REACTIONS (35)
  - Urinary tract infection [Recovered/Resolved]
  - Hallucination, visual [Unknown]
  - Uhthoff^s phenomenon [Unknown]
  - Nystagmus [Unknown]
  - Heart rate increased [Unknown]
  - Quadriparesis [Unknown]
  - Lymphopenia [Unknown]
  - Dysphagia [Unknown]
  - Inflammation [Unknown]
  - Hyperventilation [Unknown]
  - Status epilepticus [Recovered/Resolved]
  - Conversion disorder [Unknown]
  - Leukoencephalopathy [Unknown]
  - Leukopenia [Unknown]
  - Loss of consciousness [Unknown]
  - Escherichia urinary tract infection [Recovered/Resolved]
  - Multiple sclerosis relapse [Unknown]
  - Hyperreflexia [Unknown]
  - Gait disturbance [Unknown]
  - Limb discomfort [Unknown]
  - Depression [Unknown]
  - Cerebral disorder [Unknown]
  - Saccadic eye movement [Unknown]
  - Concomitant disease aggravated [Recovering/Resolving]
  - Decreased vibratory sense [Unknown]
  - Movement disorder [Unknown]
  - Scoliosis [Unknown]
  - Prescribed underdose [Unknown]
  - Fatigue [Unknown]
  - Disorientation [Unknown]
  - Dysarthria [Unknown]
  - Speech disorder [Recovering/Resolving]
  - Dyspnoea [Unknown]
  - Pyrexia [Recovered/Resolved]
  - Diplopia [Unknown]

NARRATIVE: CASE EVENT DATE: 20160420
